FAERS Safety Report 5152994-7 (Version None)
Quarter: 2006Q4

REPORT INFORMATION
  Report Type: 
  Country: None (occurrence: None)
  Receive Date: 20061117
  Receipt Date: 20061108
  Transmission Date: 20070319
  Serious: Yes (Hospitalization)
  Sender: FDA-Public Use
  Company Number: GB-BRISTOL-MYERS SQUIBB COMPANY-13579040

PATIENT
  Age: 57 Year
  Sex: Female

DRUGS (8)
  1. CYCLOPHOSPHAMIDE [Suspect]
     Indication: BREAST CANCER METASTATIC
     Route: 042
     Dates: start: 20060710, end: 20060710
  2. AMLODIPINE [Concomitant]
  3. CO-AMILOFRUSE [Concomitant]
     Route: 048
     Dates: end: 20060717
  4. CO-TENIDONE [Concomitant]
     Indication: HYPERTENSION
     Route: 048
     Dates: end: 20060717
  5. EPIRUBICIN [Concomitant]
     Indication: BREAST CANCER METASTATIC
     Route: 042
     Dates: start: 20060710
  6. EZETIMIBE [Concomitant]
     Indication: HYPERCHOLESTEROLAEMIA
     Route: 048
  7. FLUOROURACIL [Concomitant]
     Indication: CHEMOTHERAPY
     Route: 042
     Dates: start: 20060710
  8. METOCLOPRAMIDE [Concomitant]
     Indication: NAUSEA
     Route: 048
     Dates: end: 20060714

REACTIONS (3)
  - AGITATION [None]
  - HYPONATRAEMIA [None]
  - RESTLESSNESS [None]
